FAERS Safety Report 4808125-3 (Version None)
Quarter: 2005Q4

REPORT INFORMATION
  Report Type: 
  Country: None (occurrence: None)
  Receive Date: 20051024
  Receipt Date: 20051014
  Transmission Date: 20060501
  Serious: Yes (Hospitalization, Disabling)
  Sender: FDA-Public Use
  Company Number: US-MERCK-0510USA07535

PATIENT
  Sex: Male

DRUGS (2)
  1. VYTORIN [Suspect]
     Route: 048
  2. COUMADIN [Concomitant]
     Route: 065

REACTIONS (3)
  - ADVERSE EVENT [None]
  - MYOSITIS [None]
  - THROMBOSIS [None]
